FAERS Safety Report 5157052-3 (Version None)
Quarter: 2006Q4

REPORT INFORMATION
  Report Type: 
  Country: None (occurrence: None)
  Receive Date: 20061127
  Receipt Date: 20061116
  Transmission Date: 20070319
  Serious: Yes (Other)
  Sender: FDA-Public Use
  Company Number: ES-ELI_LILLY_AND_COMPANY-ES200611003053

PATIENT
  Age: 41 Year
  Sex: Male

DRUGS (4)
  1. ZYPREXA [Suspect]
     Dosage: 20 MG, 2/D
     Route: 048
     Dates: start: 20050801, end: 20060830
  2. TRIZIVIR                                /UNK/ [Concomitant]
     Dosage: 2 D/F, 2/D
     Route: 048
     Dates: start: 20050801, end: 20060830
  3. VALIUM                                  /NET/ [Concomitant]
     Dosage: 10 MG, DAILY (1/D)
     Route: 048
     Dates: start: 20050801, end: 20060830
  4. METHADONE HCL [Concomitant]
     Dosage: 50 MG, DAILY (1/D)
     Route: 048
     Dates: start: 20050801

REACTIONS (1)
  - PANCYTOPENIA [None]
